FAERS Safety Report 4653194-7 (Version None)
Quarter: 2005Q2

REPORT INFORMATION
  Report Type: 
  Country: None (occurrence: None)
  Receive Date: 20050503
  Receipt Date: 20050503
  Transmission Date: 20051028
  Serious: Yes (Life-Threatening, Hospitalization)
  Sender: FDA-Public Use
  Company Number: None

PATIENT
  Sex: Male
  Weight: 35 kg

DRUGS (1)
  1. GENGRAF [Suspect]
     Indication: IMMUNOSUPPRESSION
     Dosage: 85MG PO BID   ~ 2 MONTHS NOW
     Route: 048

REACTIONS (6)
  - BRADYCARDIA [None]
  - CONVULSION [None]
  - DIZZINESS [None]
  - PHARMACEUTICAL PRODUCT COMPLAINT [None]
  - SYNCOPE [None]
  - TRANSPLANT REJECTION [None]
